FAERS Safety Report 4818558-7 (Version None)
Quarter: 2005Q4

REPORT INFORMATION
  Report Type: 
  Country: None (occurrence: None)
  Receive Date: 20051031
  Receipt Date: 20050331
  Transmission Date: 20060501
  Serious: No
  Sender: FDA-Public Use
  Company Number: 800331

PATIENT
  Age: 61 Year
  Sex: Male
  Weight: 77 kg

DRUGS (22)
  1. EXTRANEAL [Suspect]
     Indication: RENAL FAILURE CHRONIC
     Dosage: 2000 ML;EVERY DAY;IP
     Dates: start: 20040214
  2. DIANEAL [Concomitant]
  3. NITRODERM [Concomitant]
  4. ASPIRIN [Concomitant]
  5. TANKARU [Concomitant]
  6. RENAGEL [Concomitant]
  7. VALSARTAN [Concomitant]
  8. GASMOTIN [Concomitant]
  9. ALTAT [Concomitant]
  10. MUCODYNE [Concomitant]
  11. MUCOSOLVAN [Concomitant]
  12. ALLOPURINOL [Concomitant]
  13. POLYCARBOPHIL CALCIUM [Concomitant]
  14. PROSTANDIN [Concomitant]
  15. INSULIN HUMAN [Concomitant]
  16. TOCOPHEROL CONCENTRATE CAP [Concomitant]
  17. LAXOBERON [Concomitant]
  18. EPOGIN [Concomitant]
  19. PANALDINE [Concomitant]
  20. KINEDAK [Concomitant]
  21. ALOSENN [Concomitant]
  22. NIFEDIPINE [Concomitant]

REACTIONS (3)
  - DIZZINESS [None]
  - VERTIGO [None]
  - VESTIBULAR DISORDER [None]
